FAERS Safety Report 11683832 (Version 1)
Quarter: 2015Q4

REPORT INFORMATION
  Report Type: Spontaneous
  Country: US (occurrence: US)
  Receive Date: 20151029
  Receipt Date: 20151029
  Transmission Date: 20160304
  Serious: No
  Sender: FDA-Public Use
  Company Number: US-ROCHE-1510362

PATIENT
  Sex: Female

DRUGS (8)
  1. NEUPOGEN [Concomitant]
     Active Substance: FILGRASTIM
     Route: 065
  2. DECADRON [Concomitant]
     Active Substance: DEXAMETHASONE
  3. TAXOTERE [Concomitant]
     Active Substance: DOCETAXEL
  4. HERCEPTIN [Suspect]
     Active Substance: TRASTUZUMAB
     Indication: BREAST CANCER METASTATIC
     Route: 065
     Dates: start: 20141111
  5. ACETAMINOPHEN. [Concomitant]
     Active Substance: ACETAMINOPHEN
  6. BENADRYL [Concomitant]
     Active Substance: DIPHENHYDRAMINE HYDROCHLORIDE
  7. ALOXI [Concomitant]
     Active Substance: PALONOSETRON HYDROCHLORIDE
  8. PARAPLATIN [Concomitant]
     Active Substance: CARBOPLATIN

REACTIONS (2)
  - No adverse event [Unknown]
  - Medication error [Unknown]
